FAERS Safety Report 5521271-4 (Version None)
Quarter: 2007Q4

REPORT INFORMATION
  Report Type: 
  Country: None (occurrence: None)
  Receive Date: 20071119
  Receipt Date: 20071112
  Transmission Date: 20080405
  Serious: Yes (Death)
  Sender: FDA-Public Use
  Company Number: JP-ROXANE LABORATORIES, INC-2007-DE-06026GD

PATIENT
  Age: 22 Year
  Sex: Female

DRUGS (5)
  1. BROTIZOLAM [Suspect]
  2. PAROXETINE [Suspect]
  3. PEROSPIROE [Suspect]
  4. FLUNITRAZEPAM [Suspect]
  5. ETIZOLAM [Suspect]

REACTIONS (6)
  - ASPHYXIA [None]
  - ASPIRATION [None]
  - COMPLETED SUICIDE [None]
  - DRUG ABUSE [None]
  - OVERDOSE [None]
  - VOMITING [None]
